FAERS Safety Report 23769618 (Version 2)
Quarter: 2024Q2

REPORT INFORMATION
  Report Type: Spontaneous
  Country: US (occurrence: US)
  Receive Date: 20240422
  Receipt Date: 20240430
  Transmission Date: 20240716
  Serious: Yes (Death)
  Sender: FDA-Public Use
  Company Number: US-HALOZYME THERAPEUTICS, INC.-2024-US-TX -02886

PATIENT

DRUGS (1)
  1. XYOSTED [Suspect]
     Active Substance: TESTOSTERONE ENANTHATE
     Indication: Prostatomegaly

REACTIONS (1)
  - Pulmonary fibrosis [Fatal]
